FAERS Safety Report 4922935-3 (Version None)
Quarter: 2006Q1

REPORT INFORMATION
  Report Type: 
  Country: None (occurrence: None)
  Receive Date: 20060224
  Receipt Date: 20050414
  Transmission Date: 20060701
  Serious: Yes (Death)
  Sender: FDA-Public Use
  Company Number: US-MERCK-0504USA02845

PATIENT
  Age: 72 Year
  Sex: Female
  Weight: 49 kg

DRUGS (12)
  1. RISPERDAL [Concomitant]
     Indication: SCHIZOPHRENIA
     Route: 048
  2. LANOXIN [Concomitant]
     Route: 048
  3. NORVASC [Concomitant]
     Route: 048
  4. ENALAPRIL MALEATE [Concomitant]
     Route: 048
  5. LASIX [Concomitant]
     Route: 048
  6. ALLOPURINOL [Concomitant]
     Route: 048
  7. MINERALS (UNSPECIFIED) AND VITAMINS (UNSPECIFIED) [Concomitant]
     Route: 065
  8. UBIDECARENONE [Concomitant]
     Route: 065
  9. VIOXX [Suspect]
     Indication: ARTHRITIS
     Route: 048
     Dates: start: 20030201, end: 20040901
  10. ASPIRIN [Concomitant]
     Indication: ISCHAEMIC HEART DISEASE PROPHYLAXIS
     Route: 048
     Dates: start: 20020201, end: 20041101
  11. PAXIL [Concomitant]
     Indication: DEPRESSION
     Route: 048
  12. ATIVAN [Concomitant]
     Indication: ANXIETY
     Route: 048
     Dates: start: 20020101, end: 20051001

REACTIONS (2)
  - DEATH [None]
  - TRANSIENT ISCHAEMIC ATTACK [None]
